FAERS Safety Report 23733333 (Version 1)
Quarter: 2024Q2

REPORT INFORMATION
  Report Type: Spontaneous
  Country: US (occurrence: US)
  Receive Date: 20240411
  Receipt Date: 20240411
  Transmission Date: 20240715
  Serious: Yes (Life-Threatening, Hospitalization)
  Sender: FDA-Public Use
  Company Number: US-MYLANLABS-2024M1032525

PATIENT
  Age: 42 Year
  Sex: Male

DRUGS (3)
  1. DOXYCYCLINE [Suspect]
     Active Substance: DOXYCYCLINE
     Indication: Lyme disease
     Dosage: UNK
     Route: 065
  2. ADENOSINE [Suspect]
     Active Substance: ADENOSINE
     Indication: Supraventricular tachycardia
     Dosage: 6 MILLIGRAM
     Route: 042
  3. ADENOSINE [Suspect]
     Active Substance: ADENOSINE
     Dosage: 12 MILLIGRAM
     Route: 042

REACTIONS (1)
  - Drug ineffective [Unknown]
